FAERS Safety Report 4706920-2 (Version None)
Quarter: 2005Q2

REPORT INFORMATION
  Report Type: 
  Country: None (occurrence: None)
  Receive Date: 20050630
  Receipt Date: 20050621
  Transmission Date: 20051028
  Serious: Yes (Hospitalization)
  Sender: FDA-Public Use
  Company Number: MK200506-0309-1

PATIENT
  Age: 54 Year
  Sex: Female

DRUGS (2)
  1. MORPHINE SULFATE [Suspect]
     Indication: PAIN
     Dosage: QID, PO
     Route: 048
     Dates: start: 20030701, end: 20040701
  2. DURAGESIC-100 [Concomitant]

REACTIONS (5)
  - ELECTROLYTE IMBALANCE [None]
  - MALAISE [None]
  - NAUSEA [None]
  - ORGAN FAILURE [None]
  - VOMITING [None]
